FAERS Safety Report 4392723-8 (Version None)
Quarter: 2004Q3

REPORT INFORMATION
  Report Type: 
  Country: None (occurrence: None)
  Receive Date: 20040702
  Receipt Date: 20040325
  Transmission Date: 20050211
  Serious: Yes (Other)
  Sender: FDA-Public Use
  Company Number: 2004UW05878

PATIENT
  Age: 65 Year
  Sex: Female
  Weight: 81.1939 kg

DRUGS (3)
  1. CRESTOR [Suspect]
     Indication: BLOOD CHOLESTEROL INCREASED
     Dates: start: 20040324
  2. NITROGLYCERIN [Concomitant]
  3. BLOOD PRESSURE PILLS [Concomitant]

REACTIONS (2)
  - DRY MOUTH [None]
  - NAUSEA [None]
